FAERS Safety Report 9610970 (Version 5)
Quarter: 2018Q4

REPORT INFORMATION
  Report Type: Spontaneous
  Country: US (occurrence: US)
  Receive Date: 20131009
  Receipt Date: 20181111
  Transmission Date: 20190205
  Serious: Yes (Hospitalization, Other)
  Sender: FDA-Public Use
  Company Number: US-009507513-1310USA000267

PATIENT
  Sex: Female
  Weight: 51.7 kg

DRUGS (4)
  1. FOSAMAX [Suspect]
     Active Substance: ALENDRONATE SODIUM
     Indication: OSTEOPENIA
     Dosage: UNK
     Route: 048
     Dates: start: 1997
  2. FOSAMAX [Suspect]
     Active Substance: ALENDRONATE SODIUM
     Indication: OSTEOPENIA
     Dosage: 70 MILLIGRAM, UNK
     Route: 048
     Dates: start: 2005, end: 2008
  3. ALENDRONATE SODIUM. [Suspect]
     Active Substance: ALENDRONATE SODIUM
     Indication: OSTEOPENIA
     Dosage: 70 MILLIGRAM, UNK
     Dates: start: 20050114, end: 20081018
  4. BONIVA [Suspect]
     Active Substance: IBANDRONATE SODIUM
     Indication: OSTEOPENIA
     Dosage: 150 MG, UNK
     Route: 065
     Dates: start: 2009, end: 201101

REACTIONS (23)
  - Left ventricular hypertrophy [Unknown]
  - Hyperlipidaemia [Unknown]
  - Osteoporosis [Unknown]
  - Osteoporosis [Unknown]
  - Gastric ulcer [Recovered/Resolved]
  - Bunion operation [Unknown]
  - Hypertension [Unknown]
  - Nasal septal operation [Unknown]
  - Gastritis [Unknown]
  - Electrocardiogram Q wave abnormal [Unknown]
  - Hypertension [Unknown]
  - Cardiac murmur [Unknown]
  - Femur fracture [Recovering/Resolving]
  - Hiatus hernia [Unknown]
  - Foot fracture [Unknown]
  - Migraine [Recovered/Resolved]
  - Toe operation [Unknown]
  - Osteoarthritis [Unknown]
  - Endodontic procedure [Unknown]
  - Leukopenia [Unknown]
  - Foot operation [Unknown]
  - Rash macular [Unknown]
  - Gastrooesophageal reflux disease [Unknown]

NARRATIVE: CASE EVENT DATE: 2006
